FAERS Safety Report 5771701-8 (Version None)
Quarter: 2008Q2

REPORT INFORMATION
  Report Type: 
  Country: None (occurrence: None)
  Receive Date: 20080613
  Receipt Date: 20080605
  Transmission Date: 20081010
  Serious: Yes (Death)
  Sender: FDA-Public Use
  Company Number: JP-BRISTOL-MYERS SQUIBB COMPANY-14225544

PATIENT
  Age: 40 Year
  Sex: Male

DRUGS (7)
  1. ABILIFY [Suspect]
     Indication: SCHIZOPHRENIA
     Route: 048
     Dates: end: 20080602
  2. LITHIUM CARBONATE [Suspect]
     Route: 048
     Dates: end: 20080602
  3. ZYPREXA [Suspect]
     Route: 048
     Dates: end: 20080602
  4. PROMETHAZINE [Suspect]
     Route: 065
     Dates: end: 20080602
  5. EURODIN [Suspect]
     Route: 048
     Dates: end: 20080602
  6. SERENACE [Concomitant]
  7. CHLORPROMAZINE HCL [Concomitant]

REACTIONS (1)
  - SUDDEN DEATH [None]
